FAERS Safety Report 5333505-X (Version None)
Quarter: 2007Q2

REPORT INFORMATION
  Report Type: 
  Country: None (occurrence: None)
  Receive Date: 20070521
  Receipt Date: 20070508
  Transmission Date: 20071010
  Serious: Yes (Other)
  Sender: FDA-Public Use
  Company Number: 430030K07USA

PATIENT
  Age: 49 Year
  Sex: Female
  Weight: 58.9676 kg

DRUGS (3)
  1. NOVANTRONE [Suspect]
     Indication: MULTIPLE SCLEROSIS
     Dosage: 19 MG, 1 IN 3 MONTHS, INTRAVENOUS (NOT OTHERWISE SPECIFIED)
     Route: 042
     Dates: start: 20050609, end: 20070101
  2. BACLOFEN [Concomitant]
  3. DECADRON (DEXAMETHASONE /00016001/) [Concomitant]

REACTIONS (4)
  - EJECTION FRACTION DECREASED [None]
  - EXTRASYSTOLES [None]
  - NAUSEA [None]
  - OSTEOPOROSIS [None]
